FAERS Safety Report 10156959 (Version 2)
Quarter: 2014Q2

REPORT INFORMATION
  Report Type: Report from Study
  Country: CA (occurrence: CA)
  Receive Date: 20140507
  Receipt Date: 20140623
  Transmission Date: 20141212
  Serious: Yes (Other)
  Sender: FDA-Public Use
  Company Number: CA-JNJFOC-20140420809

PATIENT
  Age: 55 Year
  Sex: Female
  Weight: 113.4 kg

DRUGS (2)
  1. STELARA [Suspect]
     Indication: PSORIASIS
     Route: 058
     Dates: start: 201306
  2. STELARA [Suspect]
     Indication: PSORIASIS
     Route: 058
     Dates: start: 20140203

REACTIONS (6)
  - Pneumonia [Unknown]
  - Blood pressure increased [Recovering/Resolving]
  - Asthma [Unknown]
  - Pharyngitis [Recovered/Resolved]
  - Nasopharyngitis [Unknown]
  - Pneumonia [Unknown]
